FAERS Safety Report 8415568-8 (Version None)
Quarter: 2012Q2

REPORT INFORMATION
  Report Type: 
  Country: None (occurrence: None)
  Receive Date: 20120530
  Receipt Date: 20120521
  Transmission Date: 20120825
  Serious: Yes (Other)
  Sender: FDA-Public Use
  Company Number: JPI-P-020846

PATIENT
  Age: 61 Year
  Sex: Female
  Weight: 67.586 kg

DRUGS (3)
  1. LEXAPRO [Concomitant]
  2. XYREM [Suspect]
     Indication: CATAPLEXY
     Dosage: ,ORAL, 7.5 GM (3.75 GM,2 IN 1 D),ORAL
     Route: 048
     Dates: start: 20111221
  3. LAMICTAL [Concomitant]

REACTIONS (3)
  - BLADDER CANCER [None]
  - URINARY INCONTINENCE [None]
  - ENURESIS [None]
